FAERS Safety Report 5878857-7 (Version None)
Quarter: 2008Q3

REPORT INFORMATION
  Report Type: 
  Country: None (occurrence: None)
  Receive Date: 20080910
  Receipt Date: 20080825
  Transmission Date: 20090109
  Serious: Yes (Death)
  Sender: FDA-Public Use
  Company Number: 08-214

PATIENT
  Age: 41 Year
  Sex: Male

DRUGS (1)
  1. FAZACLO ODT [Suspect]
     Dosage: 175 MG DAILY; PO
     Route: 048

REACTIONS (1)
  - CEREBROVASCULAR ACCIDENT [None]
